FAERS Safety Report 15790117 (Version 1)
Quarter: 2019Q1

REPORT INFORMATION
  Report Type: Spontaneous
  Country: US (occurrence: US)
  Receive Date: 20190104
  Receipt Date: 20190104
  Transmission Date: 20190417
  Serious: Yes (Disabling)
  Sender: FDA-Public Use
  Company Number: None

PATIENT
  Age: 18 Year
  Sex: Female
  Weight: 78.75 kg

DRUGS (7)
  1. OXARBAZEPINE [Concomitant]
  2. HYALURONIC ACID [Concomitant]
     Active Substance: HYALURONIC ACID
  3. FOSAMAX [Concomitant]
     Active Substance: ALENDRONATE SODIUM
  4. TOPIRAMATE. [Concomitant]
     Active Substance: TOPIRAMATE
  5. VICODIN [Concomitant]
     Active Substance: ACETAMINOPHEN\HYDROCODONE BITARTRATE
  6. LAMICTAL [Suspect]
     Active Substance: LAMOTRIGINE
     Indication: EPILEPSY
     Route: 048
  7. CALCIUM WITH VITAMIN D ZINC [Concomitant]

REACTIONS (5)
  - Pyrexia [None]
  - Anti-SRP antibody positive [None]
  - Fatigue [None]
  - Lower respiratory tract infection [None]
  - Nasopharyngitis [None]

NARRATIVE: CASE EVENT DATE: 20000901
